FAERS Safety Report 24662796 (Version 2)
Quarter: 2024Q4

REPORT INFORMATION
  Report Type: Spontaneous
  Country: US (occurrence: US)
  Receive Date: 20241126
  Receipt Date: 20241128
  Transmission Date: 20250115
  Serious: No
  Sender: SANOFI AVENTIS
  Company Number: US-SANOFI-02309639

PATIENT
  Age: 53 Year
  Sex: Male

DRUGS (2)
  1. LANTUS [Suspect]
     Active Substance: INSULIN GLARGINE
     Indication: Type 2 diabetes mellitus
     Dosage: 16 IU, QD
     Route: 058
     Dates: start: 20241114, end: 202411
  2. LANTUS [Suspect]
     Active Substance: INSULIN GLARGINE
     Dosage: 24 IU, QD
     Route: 058
     Dates: start: 202411

REACTIONS (1)
  - Product dispensing error [Unknown]

NARRATIVE: CASE EVENT DATE: 20241101
